FAERS Safety Report 5380078-1 (Version None)
Quarter: 2007Q3

REPORT INFORMATION
  Report Type: 
  Country: None (occurrence: None)
  Receive Date: 20070706
  Receipt Date: 20070418
  Transmission Date: 20080115
  Serious: No
  Sender: FDA-Public Use
  Company Number: A0647824A

PATIENT
  Age: 58 Year
  Sex: Female

DRUGS (8)
  1. TYKERB [Suspect]
     Indication: BREAST CANCER
     Dosage: 5TAB PER DAY
     Route: 048
     Dates: start: 20070301
  2. XELODA [Concomitant]
  3. FEMARA [Concomitant]
  4. COUMADIN [Concomitant]
  5. VIT C [Concomitant]
  6. NEXIUM [Concomitant]
  7. VIT B6 [Concomitant]
  8. VICODIN [Concomitant]

REACTIONS (1)
  - FATIGUE [None]
